FAERS Safety Report 25548329 (Version 1)
Quarter: 2025Q3

REPORT INFORMATION
  Report Type: Spontaneous
  Country: JP (occurrence: JP)
  Receive Date: 20250714
  Receipt Date: 20250714
  Transmission Date: 20251020
  Serious: Yes (Other)
  Sender: GLAXOSMITHKLINE
  Company Number: JP-GSKJP-JP2025JPN086181AA

PATIENT
  Sex: Male

DRUGS (3)
  1. DAPRODUSTAT [Suspect]
     Active Substance: DAPRODUSTAT
     Indication: Red blood cell count decreased
     Dosage: 4 MG, QD
  2. ATENOLOL [Concomitant]
     Active Substance: ATENOLOL
  3. ATORVASTATIN [Concomitant]
     Active Substance: ATORVASTATIN

REACTIONS (11)
  - Arrhythmia [Unknown]
  - Blood test abnormal [Unknown]
  - Haemoglobin decreased [Unknown]
  - Blood pressure increased [Unknown]
  - Investigation abnormal [Unknown]
  - Feeling abnormal [Unknown]
  - Headache [Unknown]
  - Tinnitus [Unknown]
  - Head discomfort [Unknown]
  - Product prescribing issue [Unknown]
  - Off label use [Unknown]
